FAERS Safety Report 7732737-0 (Version None)
Quarter: 2011Q3

REPORT INFORMATION
  Report Type: 
  Country: None (occurrence: None)
  Receive Date: 20110907
  Receipt Date: 20110411
  Transmission Date: 20111222
  Serious: Yes (Disabling)
  Sender: FDA-Public Use
  Company Number: PHHY2011US31085

PATIENT
  Sex: Female

DRUGS (14)
  1. GENTEAL PM LUBRICANT EYE OINTMENT [Suspect]
     Indication: DRY EYE
  2. CHLORTHALIDONE [Concomitant]
     Dosage: 25 MG, UNK
  3. DIOVAN [Concomitant]
     Indication: HYPERTENSION
     Dosage: 320 MG, UNK
     Route: 048
  4. VITAMIN TAB [Concomitant]
  5. LOVAZA [Concomitant]
     Dosage: 1 MG, UNK
  6. CALCIUM CARBONATE [Concomitant]
     Dosage: 600 MG, UNK
  7. NORVASC [Concomitant]
     Indication: HYPERTENSION
  8. GENTEAL PM LUBRICANT EYE OINTMENT [Suspect]
     Indication: LACRIMATION INCREASED
     Dosage: ONCE AT NIGHT TIME IN BOTH EYES
     Route: 047
     Dates: start: 20100201
  9. PREVACID [Concomitant]
     Indication: GASTROOESOPHAGEAL REFLUX DISEASE
     Dosage: 15 MG, UNK
     Route: 048
  10. NORVASC [Concomitant]
     Indication: CHEST PAIN
     Dosage: 500 MG, UNK
     Route: 048
  11. VYTORIN [Concomitant]
     Indication: BLOOD CHOLESTEROL
     Dosage: UNK OT, 10/20 MG
  12. ASPIRIN [Concomitant]
     Dosage: 81 MG, UNK
  13. VITAMIN D [Concomitant]
  14. VITAMIN-MINERAL COMPOUND TAB [Concomitant]

REACTIONS (3)
  - DRUG INEFFECTIVE [None]
  - VISION BLURRED [None]
  - LACRIMATION INCREASED [None]
